FAERS Safety Report 9789820 (Version 3)
Quarter: 2015Q2

REPORT INFORMATION
  Report Type: Report from Study
  Country: US (occurrence: US)
  Receive Date: 20131231
  Receipt Date: 20150409
  Transmission Date: 20150821
  Serious: Yes (Other)
  Sender: FDA-Public Use
  Company Number: US-ROCHE-1325014

PATIENT
  Sex: Female

DRUGS (15)
  1. SEREVENT DISKUS [Concomitant]
     Active Substance: SALMETEROL XINAFOATE
     Route: 065
  2. QVAR [Concomitant]
     Active Substance: BECLOMETHASONE DIPROPIONATE
     Route: 065
  3. XOLAIR [Suspect]
     Active Substance: OMALIZUMAB
     Indication: ASTHMA
     Route: 058
  4. SERTRALINE HCL [Concomitant]
     Active Substance: SERTRALINE HYDROCHLORIDE
     Route: 048
  5. RELAFEN [Concomitant]
     Active Substance: NABUMETONE
     Dosage: AS PER NEED
     Route: 065
  6. FLONASE (UNITED STATES) [Concomitant]
  7. XOLAIR [Suspect]
     Active Substance: OMALIZUMAB
     Route: 058
     Dates: start: 20150101
  8. ALPRAZOLAM. [Concomitant]
     Active Substance: ALPRAZOLAM
     Dosage: AS PER NEED
     Route: 065
  9. EPIPEN [Concomitant]
     Active Substance: EPINEPHRINE
     Dosage: 0.3 MG/0.3 ML INJECTION UD
     Route: 065
  10. XYZAL [Concomitant]
     Active Substance: LEVOCETIRIZINE DIHYDROCHLORIDE
     Route: 048
  11. SINGULAIR [Concomitant]
     Active Substance: MONTELUKAST SODIUM
     Route: 065
  12. METHYLPREDNISOLONE. [Concomitant]
     Active Substance: METHYLPREDNISOLONE
     Route: 048
  13. SIMVASTATIN. [Concomitant]
     Active Substance: SIMVASTATIN
     Route: 065
  14. METHYLPREDNISOLONE. [Concomitant]
     Active Substance: METHYLPREDNISOLONE
     Dosage: 1.5 TABLET
     Route: 048
  15. PROAIR HFA [Concomitant]
     Active Substance: ALBUTEROL SULFATE
     Dosage: 108 MCG/ACT ONE AS PER NEED
     Route: 065

REACTIONS (14)
  - Cough [Not Recovered/Not Resolved]
  - Dysphagia [Unknown]
  - Spirometry abnormal [Unknown]
  - Arthralgia [Not Recovered/Not Resolved]
  - Sjogren^s syndrome [Unknown]
  - Throat irritation [Unknown]
  - Nasal obstruction [Unknown]
  - Asthma [Unknown]
  - Sinusitis bacterial [Unknown]
  - Fatigue [Unknown]
  - Depression [Unknown]
  - Staphylococcal infection [Unknown]
  - Rhinorrhoea [Unknown]
  - Back pain [Unknown]
